FAERS Safety Report 24650100 (Version 1)
Quarter: 2024Q4

REPORT INFORMATION
  Report Type: Spontaneous
  Country: JP (occurrence: JP)
  Receive Date: 20241122
  Receipt Date: 20241122
  Transmission Date: 20250114
  Serious: Yes (Death)
  Sender: BOEHRINGER INGELHEIM
  Company Number: JP-NBI-2024-BI-063574

PATIENT
  Age: 42 Year
  Sex: Female

DRUGS (1)
  1. OFEV [Suspect]
     Active Substance: NINTEDANIB
     Indication: Interstitial lung disease
     Route: 065

REACTIONS (1)
  - Lung neoplasm malignant [Fatal]
